FAERS Safety Report 8791941 (Version 1)
Quarter: 2012Q4

REPORT INFORMATION
  Report Type: 
  Country: AU (occurrence: AU)
  Receive Date: 20120918
  Receipt Date: 20120918
  Transmission Date: 20130627
  Serious: Yes (Other)
  Sender: FDA-Public Use
  Company Number: AU-PFIZER INC-2012228160

PATIENT
  Age: 79 Year
  Sex: Female

DRUGS (7)
  1. CORDARONE [Suspect]
     Indication: ATRIAL FIBRILLATION
     Dosage: UNK
     Route: 065
  2. NEXIUM [Concomitant]
     Dosage: UNK
  3. RANITIDINE [Concomitant]
     Dosage: UNK
  4. ADALAT [Concomitant]
     Dosage: UNK
  5. VAGIFEM [Concomitant]
     Dosage: UNK
  6. MOVICOL [Concomitant]
     Dosage: UNK
  7. TELFAST [Concomitant]
     Dosage: UNK

REACTIONS (1)
  - Scleroderma [Unknown]
